FAERS Safety Report 7947175-5 (Version None)
Quarter: 2011Q4

REPORT INFORMATION
  Report Type: 
  Country: None (occurrence: None)
  Receive Date: 20111129
  Receipt Date: 20111117
  Transmission Date: 20120403
  Serious: Yes (Other)
  Sender: FDA-Public Use
  Company Number: US-ASTRAZENECA-2011SE68645

PATIENT
  Age: 82 Year
  Sex: Female
  Weight: 49.9 kg

DRUGS (24)
  1. NEXIUM [Suspect]
     Indication: DYSPEPSIA
     Route: 048
     Dates: start: 20040101
  2. DETROL LA [Concomitant]
     Indication: BLADDER DISORDER
     Route: 048
  3. MELOXICAM [Concomitant]
     Indication: ARTHRITIS
     Dosage: 1-2 TABS DAILY
  4. HYOSCYAMINE [Concomitant]
     Indication: DIARRHOEA
     Route: 048
  5. GLUCOSAMINE [Concomitant]
  6. EYEDROPS [Concomitant]
     Indication: GLAUCOMA
  7. CETIRIZINE HCL [Concomitant]
     Indication: SEASONAL ALLERGY
  8. MELOXICAM [Concomitant]
     Indication: BACK PAIN
     Dosage: 1-2 TABS DAILY
  9. VITAMIN E [Concomitant]
  10. ALLEGRA [Concomitant]
     Indication: HYPERSENSITIVITY
  11. BIOTIN [Concomitant]
     Indication: HAIR DISORDER
  12. MULTI-VITAMINS [Concomitant]
  13. CALCIUM [Concomitant]
  14. ASCORBIC ACID [Concomitant]
  15. NEXIUM [Suspect]
     Indication: GASTROOESOPHAGEAL REFLUX DISEASE
     Route: 048
     Dates: start: 20040101
  16. PLAVIX [Concomitant]
     Indication: PLATELET AGGREGATION INHIBITION
     Route: 048
  17. BLACKSEED OIL [Concomitant]
  18. ALLEGRA [Concomitant]
     Indication: SEASONAL ALLERGY
  19. ASPIRIN [Concomitant]
     Indication: PLATELET AGGREGATION INHIBITION
     Route: 048
  20. RANEXA [Concomitant]
     Indication: CARDIAC DISORDER
  21. FISHOIL [Concomitant]
  22. VITAMIN D [Concomitant]
  23. GABAPENTIN [Concomitant]
     Indication: NEUROPATHY PERIPHERAL
     Route: 048
  24. CETIRIZINE HCL [Concomitant]
     Indication: HYPERSENSITIVITY

REACTIONS (5)
  - VISUAL IMPAIRMENT [None]
  - GASTROOESOPHAGEAL REFLUX DISEASE [None]
  - DYSPEPSIA [None]
  - MYOCARDIAL INFARCTION [None]
  - DRUG INEFFECTIVE [None]
